FAERS Safety Report 12484630 (Version 1)
Quarter: 2016Q2

REPORT INFORMATION
  Report Type: Spontaneous
  Country: US (occurrence: None)
  Receive Date: 20160620
  Receipt Date: 20160620
  Transmission Date: 20160815
  Serious: No
  Sender: FDA-Public Use
  Company Number: None

PATIENT
  Age: 55 Year
  Sex: Male
  Weight: 131.54 kg

DRUGS (3)
  1. HEARTBURN RELIEF CIMETIDINE TAB, 200 MG [Suspect]
     Active Substance: CIMETIDINE
     Indication: GASTROINTESTINAL DISORDER
     Route: 048
     Dates: start: 20160604, end: 20160607
  2. ADULT MULTIVITAMINE/MULTIMINERAL [Concomitant]
  3. HEARTBURN RELIEF CIMETIDINE TAB, 200 MG [Suspect]
     Active Substance: CIMETIDINE
     Indication: DYSPEPSIA
     Route: 048
     Dates: start: 20160604, end: 20160607

REACTIONS (10)
  - Faeces hard [None]
  - Product odour abnormal [None]
  - Product container seal issue [None]
  - Condition aggravated [None]
  - Product taste abnormal [None]
  - Product substitution issue [None]
  - Faeces discoloured [None]
  - Gastrointestinal disorder [None]
  - Malaise [None]
  - Faeces soft [None]

NARRATIVE: CASE EVENT DATE: 20160604
